FAERS Safety Report 23589996 (Version 2)
Quarter: 2024Q4

REPORT INFORMATION
  Report Type: Spontaneous
  Country: US (occurrence: US)
  Receive Date: 20240304
  Receipt Date: 20241021
  Transmission Date: 20250114
  Serious: No
  Sender: BIOGEN
  Company Number: US-BIOGEN-2024BI01252562

PATIENT
  Sex: Male

DRUGS (3)
  1. SPINRAZA [Suspect]
     Active Substance: NUSINERSEN
     Indication: Spinal muscular atrophy
     Route: 050
  2. VITAMIN D-400 [Concomitant]
     Indication: Product used for unknown indication
     Route: 050
  3. TALDEFGROBEP ALFA [Concomitant]
     Active Substance: TALDEFGROBEP ALFA
     Indication: Product used for unknown indication
     Route: 050

REACTIONS (2)
  - White blood cell count decreased [Unknown]
  - Attention deficit hyperactivity disorder [Unknown]
